FAERS Safety Report 11235963 (Version 1)
Quarter: 2015Q3

REPORT INFORMATION
  Report Type: Spontaneous
  Country: US (occurrence: US)
  Receive Date: 20150702
  Receipt Date: 20150702
  Transmission Date: 20151125
  Serious: No
  Sender: FDA-Public Use
  Company Number: US-TAKEDA-2015TUS003097

PATIENT
  Age: 61 Year
  Sex: Female
  Weight: 89.34 kg

DRUGS (8)
  1. BENAZEPRIL [Concomitant]
     Active Substance: BENAZEPRIL HYDROCHLORIDE
     Indication: HYPERTENSION
     Dosage: 4 MG, QD
     Route: 048
     Dates: start: 201501
  2. CONTRAVE [Suspect]
     Active Substance: BUPROPION HYDROCHLORIDE\NALTREXONE HYDROCHLORIDE
     Indication: OBESITY
     Dosage: ONE TABLET DAILY AM
     Route: 048
     Dates: start: 20150307, end: 20150308
  3. HYDROCODONE [Concomitant]
     Active Substance: HYDROCODONE
     Dosage: UNK
     Route: 048
     Dates: end: 20150226
  4. NAPROSYN [Concomitant]
     Active Substance: NAPROXEN
     Dosage: UNK
     Route: 048
  5. HYDROCORT                          /00028602/ [Concomitant]
     Dosage: UNK
     Route: 065
  6. DHEA [Concomitant]
     Active Substance: PRASTERONE
     Dosage: UNK
     Route: 065
  7. SERTRALINE [Concomitant]
     Active Substance: SERTRALINE HYDROCHLORIDE
     Indication: DEPRESSION
     Dosage: 100 MG, QD
     Dates: start: 201501
  8. BI EST [Concomitant]
     Indication: HORMONE THERAPY
     Dosage: UNK
     Route: 065

REACTIONS (7)
  - Blood pressure increased [Recovered/Resolved]
  - Chromaturia [Recovered/Resolved]
  - Palpitations [Recovered/Resolved]
  - Vomiting [Recovered/Resolved]
  - Dizziness [Recovered/Resolved]
  - Nausea [Recovered/Resolved]
  - Heart rate increased [Recovered/Resolved]

NARRATIVE: CASE EVENT DATE: 20150307
